FAERS Safety Report 8990913 (Version 1)
Quarter: 2012Q4

REPORT INFORMATION
  Report Type: 
  Country: US (occurrence: US)
  Receive Date: 20121231
  Receipt Date: 20121231
  Transmission Date: 20130627
  Serious: Yes (Other)
  Sender: FDA-Public Use
  Company Number: PHEH2012US025161

PATIENT
  Age: 53 Year
  Sex: Female

DRUGS (2)
  1. DIOVAN HCT [Suspect]
     Indication: HYPERTENSION
     Dosage: 1 DF, daily(vals 80 mg, hydr 12.5 mg)
     Route: 048
  2. DIOVAN HCT [Suspect]
     Dosage: 0.5 DF, daily (vals 160 mg, hydr 25 mg)
     Route: 048

REACTIONS (6)
  - Angina pectoris [Unknown]
  - Road traffic accident [Unknown]
  - Expired drug administered [Unknown]
  - Wrong technique in drug usage process [Unknown]
  - Rash erythematous [Unknown]
  - Rash pruritic [Unknown]
